FAERS Safety Report 10023839 (Version 1)
Quarter: 2014Q1

REPORT INFORMATION
  Report Type: Spontaneous
  Country: GB (occurrence: None)
  Receive Date: 20140122
  Receipt Date: 20140122
  Transmission Date: 20141002
  Serious: Yes (Other)
  Sender: FDA-Public Use
  Company Number: GAM-005-14-GB

PATIENT
  Age: 78 Year
  Sex: Female
  Weight: 49 kg

DRUGS (4)
  1. OCTAGAM [Suspect]
     Indication: CLOSTRIDIUM DIFFICILE INFECTION
     Dosage: NOT OTHERWISE SPECIFIED
     Route: 042
     Dates: start: 20131219, end: 20131219
  2. DALTEPARIN [Concomitant]
  3. METRONIDAZOLE [Concomitant]
  4. VANCOMYCIN [Concomitant]

REACTIONS (5)
  - Peripheral artery thrombosis [None]
  - Cerebral artery thrombosis [None]
  - Cerebral infarction [None]
  - Peripheral ischaemia [None]
  - Cerebrovascular accident [None]
